FAERS Safety Report 6200665-8 (Version None)
Quarter: 2009Q2

REPORT INFORMATION
  Report Type: 
  Country: None (occurrence: None)
  Receive Date: 20090522
  Receipt Date: 20090507
  Transmission Date: 20091009
  Serious: Yes (Death, Hospitalization, Other)
  Sender: FDA-Public Use
  Company Number: US-GENENTECH-283596

PATIENT
  Age: 60 Year
  Sex: Female

DRUGS (5)
  1. HERCEPTIN [Suspect]
     Indication: NON-SMALL CELL LUNG CANCER
     Route: 065
  2. MITOMYCIN [Suspect]
     Indication: NON-SMALL CELL LUNG CANCER
     Dosage: 24 MG/M2, UNK
     Route: 065
  3. GEMCITABINE [Suspect]
     Indication: NON-SMALL CELL LUNG CANCER
     Dosage: 4 G/M2, UNK
     Route: 065
  4. VINBLASTINE [Suspect]
     Indication: NON-SMALL CELL LUNG CANCER
     Route: 065
  5. DOCETAXEL [Concomitant]
     Indication: DRUG USE FOR UNKNOWN INDICATION

REACTIONS (6)
  - CEREBRAL HAEMORRHAGE [None]
  - DRUG TOXICITY [None]
  - HAEMOLYTIC URAEMIC SYNDROME [None]
  - MICROANGIOPATHIC HAEMOLYTIC ANAEMIA [None]
  - RENAL FAILURE [None]
  - THROMBOCYTOPENIA [None]
